FAERS Safety Report 19397121 (Version 1)
Quarter: 2021Q2

REPORT INFORMATION
  Report Type: Spontaneous
  Country: US (occurrence: US)
  Receive Date: 20210609
  Receipt Date: 20210609
  Transmission Date: 20210717
  Serious: No
  Sender: FDA-Public Use
  Company Number: US-SA-2021SA171409

PATIENT
  Sex: Female

DRUGS (1)
  1. LEFLUNOMIDE. [Suspect]
     Active Substance: LEFLUNOMIDE

REACTIONS (2)
  - Drug hypersensitivity [Unknown]
  - Hepatic function abnormal [Unknown]
